FAERS Safety Report 13674750 (Version 3)
Quarter: 2017Q3

REPORT INFORMATION
  Report Type: Spontaneous
  Country: IN (occurrence: IN)
  Receive Date: 20170621
  Receipt Date: 20170711
  Transmission Date: 20171127
  Serious: Yes (Death)
  Sender: FDA-Public Use
  Company Number: IN-JNJFOC-20170616062

PATIENT
  Age: 65 Year
  Sex: Female

DRUGS (2)
  1. DARZALEX [Suspect]
     Active Substance: DARATUMUMAB
     Indication: PLASMA CELL MYELOMA
     Dosage: (ALSO REPORTED WITH A GAP OF 15 DAYS)
     Route: 042
  2. DARZALEX [Suspect]
     Active Substance: DARATUMUMAB
     Indication: PLASMA CELL MYELOMA
     Dosage: (ALSO REPORTED WITH A GAP OF 15 DAYS)
     Route: 042
     Dates: start: 20170407

REACTIONS (1)
  - Death [Fatal]
